FAERS Safety Report 8347793-9 (Version None)
Quarter: 2012Q2

REPORT INFORMATION
  Report Type: 
  Country: None (occurrence: None)
  Receive Date: 20120509
  Receipt Date: 20120113
  Transmission Date: 20120825
  Serious: Yes (Disabling, Other)
  Sender: FDA-Public Use
  Company Number: US-GLAXOSMITHKLINE-A0961834A

PATIENT
  Age: 59 Year
  Sex: Female

DRUGS (5)
  1. LEXAPRO [Concomitant]
     Dates: start: 20061207, end: 20080129
  2. PARNATE [Suspect]
     Indication: ANXIETY
     Route: 065
  3. SYNTHROID [Concomitant]
     Indication: HYPOTHYROIDISM
  4. CELEXA [Concomitant]
     Indication: ANXIETY
     Dosage: 40MG IN THE MORNING
     Dates: start: 20110114
  5. ZOLOFT [Concomitant]
     Route: 065
     Dates: start: 20080129, end: 20110114

REACTIONS (5)
  - DRY MOUTH [None]
  - DENTAL OPERATION [None]
  - TOOTH FRACTURE [None]
  - POOR DENTAL CONDITION [None]
  - TOOTH DISORDER [None]
